FAERS Safety Report 18395294 (Version 1)
Quarter: 2020Q4

REPORT INFORMATION
  Report Type: Spontaneous
  Country: US (occurrence: US)
  Receive Date: 20201017
  Receipt Date: 20201017
  Transmission Date: 20210114
  Serious: No
  Sender: FDA-Public Use
  Company Number: US-B.I. PHARMACEUTICALS,INC./RIDGEFIELD-2020-BI-054279

PATIENT
  Sex: Male

DRUGS (1)
  1. GLYXAMBI [Suspect]
     Active Substance: EMPAGLIFLOZIN\LINAGLIPTIN
     Indication: PRODUCT USED FOR UNKNOWN INDICATION
     Dates: start: 2020

REACTIONS (6)
  - Nausea [Unknown]
  - Faeces discoloured [Unknown]
  - Nasal cavity packing [Unknown]
  - Chromaturia [Unknown]
  - Urine odour abnormal [Unknown]
  - Sunburn [Unknown]

NARRATIVE: CASE EVENT DATE: 2020
